FAERS Safety Report 9832262 (Version 2)
Quarter: 2014Q1

REPORT INFORMATION
  Report Type: Spontaneous
  Country: CA (occurrence: CA)
  Receive Date: 20140121
  Receipt Date: 20140130
  Transmission Date: 20141002
  Serious: Yes (Hospitalization, Other)
  Sender: FDA-Public Use
  Company Number: CA-MERCK-1401CAN008503

PATIENT
  Age: 81 Year
  Sex: Male
  Weight: 91.9 kg

DRUGS (2)
  1. JANUVIA [Suspect]
     Dosage: 100 MG, QAM
     Dates: start: 20120111, end: 20140120
  2. METFORMIN [Concomitant]
     Dosage: 500 MG, BID
     Route: 048

REACTIONS (8)
  - Pancreatitis acute [Recovering/Resolving]
  - Pancreatitis chronic [Unknown]
  - Cholelithiasis [Unknown]
  - Renal cyst [Unknown]
  - Diverticulum [Unknown]
  - Aortic arteriosclerosis [Unknown]
  - Aortic aneurysm [Unknown]
  - Splenic cyst [Unknown]
